FAERS Safety Report 11951587 (Version 1)
Quarter: 2016Q1

REPORT INFORMATION
  Report Type: Report from Study
  Country: US (occurrence: US)
  Receive Date: 20160126
  Receipt Date: 20160126
  Transmission Date: 20160526
  Serious: No
  Sender: FDA-Public Use
  Company Number: US-AMGEN-USASL2016006355

PATIENT
  Age: 61 Year
  Sex: Male

DRUGS (3)
  1. PREDNISONE. [Concomitant]
     Active Substance: PREDNISONE
  2. ENBREL [Suspect]
     Active Substance: ETANERCEPT
     Indication: RHEUMATOID ARTHRITIS
     Dosage: UNK UNK, QWK
     Route: 065
  3. HUMIRA [Concomitant]
     Active Substance: ADALIMUMAB

REACTIONS (7)
  - Drug ineffective [Unknown]
  - Peripheral swelling [Unknown]
  - Musculoskeletal disorder [Unknown]
  - Depression [Unknown]
  - Gait disturbance [Unknown]
  - Mobility decreased [Unknown]
  - Feeling abnormal [Unknown]
